FAERS Safety Report 7943445-5 (Version None)
Quarter: 2011Q4

REPORT INFORMATION
  Report Type: 
  Country: None (occurrence: None)
  Receive Date: 20111128
  Receipt Date: 20111122
  Transmission Date: 20120403
  Serious: Yes (Hospitalization)
  Sender: FDA-Public Use
  Company Number: IT-BRISTOL-MYERS SQUIBB COMPANY-16247942

PATIENT
  Age: 77 Year
  Sex: Female

DRUGS (1)
  1. COUMADIN [Suspect]
     Indication: EMBOLISM
     Dosage: DRUG INTERRUPTED ON 12SEP2011
     Dates: start: 20110601

REACTIONS (2)
  - HAEMATOMA [None]
  - ASTHENIA [None]
